FAERS Safety Report 10935324 (Version 1)
Quarter: 2015Q1

REPORT INFORMATION
  Report Type: Spontaneous
  Country: US (occurrence: US)
  Receive Date: 20150320
  Receipt Date: 20150320
  Transmission Date: 20150721
  Serious: Yes (Other)
  Sender: FDA-Public Use
  Company Number: US-B.I. PHARMACEUTICALS,INC./RIDGEFIELD-2015-BI-14246GD

PATIENT
  Sex: Male
  Weight: 3.11 kg

DRUGS (4)
  1. DOCUSATE SODIUM. [Suspect]
     Active Substance: DOCUSATE SODIUM
     Indication: EXPOSURE DURING PREGNANCY
     Route: 064
  2. DOCUSATE SODIUM W/MINERALS NOS/VITAMINS NOS [Suspect]
     Active Substance: DOCUSATE SODIUM\MINERALS\VITAMINS
     Indication: EXPOSURE DURING BREAST FEEDING
     Route: 063
  3. DOCUSATE SODIUM. [Suspect]
     Active Substance: DOCUSATE SODIUM
     Indication: EXPOSURE DURING BREAST FEEDING
     Route: 063
  4. DOCUSATE SODIUM W/MINERALS NOS/VITAMINS NOS [Suspect]
     Active Substance: DOCUSATE SODIUM\MINERALS\VITAMINS
     Indication: EXPOSURE DURING PREGNANCY
     Route: 064

REACTIONS (6)
  - Maternal drugs affecting foetus [None]
  - Feeling jittery [None]
  - Neonatal disorder [None]
  - Hypomagnesaemia [Unknown]
  - Neonatal disorder [Unknown]
  - Caesarean section [None]
